FAERS Safety Report 7372297-X (Version None)
Quarter: 2011Q1

REPORT INFORMATION
  Report Type: 
  Country: None (occurrence: None)
  Receive Date: 20110324
  Receipt Date: 20080912
  Transmission Date: 20110831
  Serious: Yes (Hospitalization)
  Sender: FDA-Public Use
  Company Number: B0537445B

PATIENT
  Sex: Female
  Weight: 58 kg

DRUGS (5)
  1. MELPHALAN [Suspect]
     Indication: MULTIPLE MYELOMA
     Dosage: 8MG PER DAY
     Route: 048
     Dates: start: 20071129
  2. PREDNISONE [Suspect]
     Indication: MULTIPLE MYELOMA
     Dosage: 110MG PER DAY
     Route: 048
     Dates: start: 20071129
  3. LENOGRASTIM [Concomitant]
     Indication: NEUTROPENIA
     Route: 058
     Dates: start: 20071210
  4. CLOPIDOGREL [Concomitant]
     Indication: PROPHYLAXIS
     Dosage: 75MG PER DAY
     Route: 048
     Dates: start: 20071129, end: 20071214
  5. LENALIDOMIDE [Suspect]
     Indication: MULTIPLE MYELOMA
     Dosage: 7.5MG PER DAY
     Route: 048
     Dates: start: 20071129

REACTIONS (4)
  - ANAEMIA [None]
  - FATIGUE [None]
  - PYREXIA [None]
  - DIARRHOEA [None]
